FAERS Safety Report 13020385 (Version 1)
Quarter: 2016Q4

REPORT INFORMATION
  Report Type: Spontaneous
  Country: US (occurrence: US)
  Receive Date: 20161212
  Receipt Date: 20161212
  Transmission Date: 20170207
  Serious: Yes (Hospitalization)
  Sender: FDA-Public Use
  Company Number: US-FRESENIUS MEDICAL CARE RENAL THERAPIES GROUP-FMC-1609-001144

PATIENT
  Age: 65 Year
  Sex: Female
  Weight: 97.61 kg

DRUGS (4)
  1. CALCIUM [Concomitant]
     Active Substance: CALCIUM
  2. CALCIUM CARBONATE. [Concomitant]
     Active Substance: CALCIUM CARBONATE
  3. ERGOCALCIFEROL. [Concomitant]
     Active Substance: ERGOCALCIFEROL
  4. PHOSLO [Suspect]
     Active Substance: CALCIUM ACETATE
     Indication: HYPOCALCAEMIA
     Route: 048
     Dates: start: 20130701, end: 20140904

REACTIONS (1)
  - Hypercalcaemia [Recovered/Resolved with Sequelae]
